FAERS Safety Report 13909901 (Version 2)
Quarter: 2017Q3

REPORT INFORMATION
  Report Type: Spontaneous
  Country: IE (occurrence: IE)
  Receive Date: 20170828
  Receipt Date: 20170912
  Transmission Date: 20171127
  Serious: Yes (Other)
  Sender: FDA-Public Use
  Company Number: IE-ASTELLAS-2017US033523

PATIENT
  Age: 75 Year
  Sex: Female

DRUGS (2)
  1. TACROLIMUS. [Suspect]
     Active Substance: TACROLIMUS
     Indication: DERMATOMYOSITIS
     Dosage: UNK UNK, UNKNOWN FREQ.
     Route: 065
  2. IMURAN [Suspect]
     Active Substance: AZATHIOPRINE
     Indication: DERMATOMYOSITIS
     Dosage: UNK UNK, UNKNOWN FREQ.
     Route: 065

REACTIONS (9)
  - Otitis externa [Unknown]
  - Histiocytosis haematophagic [Unknown]
  - Off label use [Unknown]
  - Urinary tract infection [Unknown]
  - Myocardial ischaemia [Unknown]
  - Hypotension [Unknown]
  - Leukopenia [Unknown]
  - Seizure [Unknown]
  - Cystitis [Unknown]
